FAERS Safety Report 7635925-7 (Version None)
Quarter: 2011Q3

REPORT INFORMATION
  Report Type: 
  Country: None (occurrence: None)
  Receive Date: 20110726
  Receipt Date: 20110712
  Transmission Date: 20111222
  Serious: Yes (Death)
  Sender: FDA-Public Use
  Company Number: NZ-MYLANLABS-2011S1014913

PATIENT
  Age: 8 Year

DRUGS (4)
  1. NITRIC OXIDE [Suspect]
     Indication: MAINTENANCE OF ANAESTHESIA
     Route: 065
  2. ISOFLURANE [Suspect]
     Indication: MAINTENANCE OF ANAESTHESIA
     Route: 065
  3. FENTANYL [Suspect]
     Indication: INDUCTION OF ANAESTHESIA
     Route: 065
  4. PROPOFOL [Suspect]
     Indication: INDUCTION OF ANAESTHESIA
     Route: 065

REACTIONS (2)
  - PULSELESS ELECTRICAL ACTIVITY [None]
  - BRADYCARDIA [None]
